FAERS Safety Report 22651150 (Version 1)
Quarter: 2023Q2

REPORT INFORMATION
  Report Type: Spontaneous
  Country: US (occurrence: None)
  Receive Date: 20230627
  Receipt Date: 20230627
  Transmission Date: 20230721
  Serious: Yes (Other)
  Sender: FDA-Public Use
  Company Number: None

PATIENT
  Age: 62 Year
  Sex: Female
  Weight: 58.5 kg

DRUGS (11)
  1. NP THYROID [Suspect]
     Active Substance: LEVOTHYROXINE\LIOTHYRONINE
     Indication: Hypothyroidism
     Dosage: OTHER QUANTITY : 1 TABLET(S);?
     Route: 048
     Dates: start: 20230501, end: 20230530
  2. LEVOTHYROXINE [Concomitant]
     Active Substance: LEVOTHYROXINE
  3. GABAPENTIN [Concomitant]
     Active Substance: GABAPENTIN
  4. TRAZODONE [Concomitant]
     Active Substance: TRAZODONE HYDROCHLORIDE
  5. CLONAZEPAM [Concomitant]
     Active Substance: CLONAZEPAM
  6. AJOVY [Concomitant]
     Active Substance: FREMANEZUMAB-VFRM
  7. Cyclosporin eye drops [Concomitant]
  8. Estrogen/Progesterone Hormone [Concomitant]
  9. IMITREX [Concomitant]
     Active Substance: SUMATRIPTAN SUCCINATE
  10. TRAMADOL [Concomitant]
     Active Substance: TRAMADOL
  11. VITAMINS [Concomitant]
     Active Substance: VITAMINS

REACTIONS (10)
  - Rash papular [None]
  - Pain [None]
  - Rash papular [None]
  - Rash [None]
  - Rash [None]
  - Insomnia [None]
  - Myalgia [None]
  - Fatigue [None]
  - Adverse drug reaction [None]
  - Skin discolouration [None]

NARRATIVE: CASE EVENT DATE: 20230523
